FAERS Safety Report 19750949 (Version 1)
Quarter: 2021Q3

REPORT INFORMATION
  Report Type: Spontaneous
  Country: CN (occurrence: CN)
  Receive Date: 20210826
  Receipt Date: 20210826
  Transmission Date: 20211014
  Serious: Yes (Hospitalization, Other)
  Sender: FDA-Public Use
  Company Number: CN-PFIZER INC-202101076377

PATIENT
  Age: 14 Year
  Sex: Male
  Weight: 48 kg

DRUGS (3)
  1. METHOTREXATE. [Suspect]
     Active Substance: METHOTREXATE
     Indication: CHEMOTHERAPY
     Dosage: 1.5 G, 1X/DAY
     Route: 041
     Dates: start: 20200212, end: 20201222
  2. PEGASPARGASE [Suspect]
     Active Substance: PEGASPARGASE
     Indication: CHEMOTHERAPY
     Dosage: 3000 IU, 1X/DAY
     Route: 041
     Dates: start: 20201225, end: 20201225
  3. CYTARABINE HYDROCHLORIDE [Suspect]
     Active Substance: CYTARABINE HYDROCHLORIDE
     Indication: CHEMOTHERAPY
     Dosage: 3 G, 2X/DAY
     Route: 041
     Dates: start: 20201223, end: 20201224

REACTIONS (4)
  - Febrile infection [Recovering/Resolving]
  - Haemoglobin decreased [Unknown]
  - Platelet count decreased [Unknown]
  - Granulocyte count decreased [Recovering/Resolving]

NARRATIVE: CASE EVENT DATE: 20210101
